FAERS Safety Report 6729827-8 (Version None)
Quarter: 2010Q2

REPORT INFORMATION
  Report Type: 
  Country: None (occurrence: None)
  Receive Date: 20100513
  Receipt Date: 20100503
  Transmission Date: 20101027
  Serious: Yes (Hospitalization)
  Sender: FDA-Public Use
  Company Number: 2010AL002707

PATIENT
  Age: 69 Year
  Sex: Male

DRUGS (3)
  1. TRAMADOL HYDROCHLORIDE [Suspect]
     Indication: BACK PAIN
     Dosage: 50 MG
     Dates: start: 20091101, end: 20091201
  2. DICLOFENAC SODIUM [Suspect]
     Indication: BACK PAIN
     Dates: start: 20091101, end: 20091101
  3. FEVERALL [Suspect]
     Indication: BACK PAIN
     Dosage: 500 MG
     Dates: start: 20091101

REACTIONS (6)
  - ALANINE AMINOTRANSFERASE INCREASED [None]
  - ASPARTATE AMINOTRANSFERASE INCREASED [None]
  - BLOOD ALKALINE PHOSPHATASE INCREASED [None]
  - BLOOD BILIRUBIN INCREASED [None]
  - HEPATOTOXICITY [None]
  - PAIN [None]
